FAERS Safety Report 8109495-3 (Version None)
Quarter: 2012Q1

REPORT INFORMATION
  Report Type: 
  Country: None (occurrence: None)
  Receive Date: 20120202
  Receipt Date: 20120120
  Transmission Date: 20120608
  Serious: Yes (Other)
  Sender: FDA-Public Use
  Company Number: TW-MYLANLABS-2012S1001661

PATIENT
  Age: 61 Year
  Sex: Female

DRUGS (3)
  1. RAMIPRIL [Suspect]
     Indication: HYPERTENSION
     Route: 065
  2. ALTEPLASE [Suspect]
     Indication: ISCHAEMIC STROKE
     Dosage: ALTEPLASE ADMINISTERED (0.9 MG/KG; TOTAL 61MG); INITIALLY BOLUS OF 6.1MG
     Route: 040
  3. ALTEPLASE [Suspect]
     Dosage: ALTEPLASE ADMINISTERED (0.9 MG/KG; TOTAL 61MG); BOLUS FOLLOWED BY INFUSION OF 54.9MG OVER 60MIN
     Route: 041

REACTIONS (1)
  - ANAPHYLACTOID SHOCK [None]
